FAERS Safety Report 17199344 (Version 1)
Quarter: 2019Q4

REPORT INFORMATION
  Report Type: Report from Study
  Country: None (occurrence: US)
  Receive Date: 20191226
  Receipt Date: 20191226
  Transmission Date: 20200122
  Serious: Yes (Other)
  Sender: FDA-Public Use
  Company Number: US-ABBVIE-19K-163-3201889-00

PATIENT
  Sex: Male

DRUGS (3)
  1. HUMIRA [Suspect]
     Active Substance: ADALIMUMAB
     Indication: CROHN^S DISEASE
     Dosage: HUMIRA CITRATE FREE
     Route: 058
  2. ASPIRIN. [Concomitant]
     Active Substance: ASPIRIN
     Indication: CARDIOVASCULAR DISORDER
  3. PLAVIX [Concomitant]
     Active Substance: CLOPIDOGREL BISULFATE
     Indication: CARDIOVASCULAR DISORDER

REACTIONS (7)
  - Constipation [Not Recovered/Not Resolved]
  - Skin laceration [Recovering/Resolving]
  - Wound haemorrhage [Unknown]
  - Diarrhoea [Recovering/Resolving]
  - Peripheral artery angioplasty [Unknown]
  - Limb injury [Recovering/Resolving]
  - Cardiovascular disorder [Unknown]

NARRATIVE: CASE EVENT DATE: 2019
